FAERS Safety Report 23355561 (Version 1)
Quarter: 2024Q1

REPORT INFORMATION
  Report Type: Other
  Country: CA (occurrence: CA)
  Receive Date: 20240102
  Receipt Date: 20240102
  Transmission Date: 20240410
  Serious: Yes (Hospitalization, Other)
  Sender: FDA-Public Use
  Company Number: CA-TOLMAR, INC.-23CA045257

PATIENT
  Age: 70 Year
  Sex: Male

DRUGS (6)
  1. ELIGARD [Suspect]
     Active Substance: LEUPROLIDE ACETATE
     Indication: Prostate cancer
     Dosage: 30 MILLIGRAM, Q 4 MONTH
     Route: 058
     Dates: start: 20200401
  2. ELIGARD [Suspect]
     Active Substance: LEUPROLIDE ACETATE
     Dosage: 30 MILLIGRAM, Q 4 MONTH
     Route: 058
     Dates: start: 20231205
  3. ELIGARD [Suspect]
     Active Substance: LEUPROLIDE ACETATE
     Indication: Prostate cancer
     Dosage: UNK
  4. RADIATION THERAPY [Suspect]
     Active Substance: RADIATION THERAPY
     Indication: Product used for unknown indication
     Dosage: UNK
  5. FRAGMIN [Concomitant]
     Active Substance: DALTEPARIN SODIUM
     Indication: Anticoagulant therapy
  6. INNOHEP [Concomitant]
     Active Substance: TINZAPARIN SODIUM
     Indication: Anticoagulant therapy

REACTIONS (4)
  - Radiation associated haemorrhage [Recovered/Resolved]
  - Haematuria [Recovered/Resolved]
  - Abdominal lymphadenopathy [Unknown]
  - Peripheral swelling [Recovering/Resolving]

NARRATIVE: CASE EVENT DATE: 20231101
